FAERS Safety Report 11400973 (Version 1)
Quarter: 2015Q3

REPORT INFORMATION
  Report Type: Spontaneous
  Country: US (occurrence: US)
  Receive Date: 20150820
  Receipt Date: 20150820
  Transmission Date: 20151125
  Serious: Yes (Other)
  Sender: FDA-Public Use
  Company Number: US-PFIZER INC-2015266649

PATIENT
  Age: 68 Year
  Sex: Female
  Weight: 62.59 kg

DRUGS (2)
  1. PLAVIX [Suspect]
     Active Substance: CLOPIDOGREL BISULFATE
     Dosage: UNK
  2. IBRANCE [Suspect]
     Active Substance: PALBOCICLIB
     Indication: BREAST CANCER STAGE IV
     Dosage: 125 MG, CYCLIC (DAY 1-21 Q 28DAYS)
     Route: 048
     Dates: start: 20150724

REACTIONS (9)
  - Nausea [Unknown]
  - Haemorrhoids [Unknown]
  - Contusion [Unknown]
  - Diarrhoea [Unknown]
  - Oral herpes [Recovering/Resolving]
  - Fatigue [Unknown]
  - Epistaxis [Unknown]
  - Haematochezia [Unknown]
  - Pain [Unknown]
